FAERS Safety Report 9835696 (Version 1)
Quarter: 2014Q1

REPORT INFORMATION
  Report Type: Spontaneous
  Country: JP (occurrence: JP)
  Receive Date: 20140122
  Receipt Date: 20140122
  Transmission Date: 20141002
  Serious: Yes (Other)
  Sender: FDA-Public Use
  Company Number: PHHY2014JP004880

PATIENT
  Age: 92 Year
  Sex: Female

DRUGS (7)
  1. CEFTRIAXONE SANDOZ [Suspect]
     Indication: PNEUMONIA
     Dosage: 1 G, UNK
     Route: 042
     Dates: start: 20140108, end: 20140114
  2. OMEPRAZOLE [Concomitant]
  3. MEYLON [Concomitant]
     Route: 042
  4. PRECEDEX [Concomitant]
     Route: 042
  5. GLUCOSE [Concomitant]
  6. NAOTAMIN [Concomitant]
     Route: 042
  7. MYOCOR [Concomitant]

REACTIONS (1)
  - Blood creatine phosphokinase increased [Recovered/Resolved]
